FAERS Safety Report 9314949 (Version 4)
Quarter: 2013Q4

REPORT INFORMATION
  Report Type: Spontaneous
  Country: BE (occurrence: BE)
  Receive Date: 20130529
  Receipt Date: 20131119
  Transmission Date: 20140711
  Serious: Yes (Death, Life-Threatening, Hospitalization, Other)
  Sender: FDA-Public Use
  Company Number: BE-JNJFOC-20130514821

PATIENT
  Age: 88 Year
  Sex: Male
  Weight: 83.9 kg

DRUGS (12)
  1. XARELTO [Suspect]
     Indication: CEREBROVASCULAR ACCIDENT PROPHYLAXIS
     Route: 048
     Dates: start: 20130107, end: 20130215
  2. XARELTO [Suspect]
     Indication: ATRIAL FIBRILLATION
     Route: 048
     Dates: start: 20130107, end: 20130215
  3. ATACAND [Concomitant]
     Indication: HYPERTENSION
     Route: 048
     Dates: end: 201303
  4. AVODART [Concomitant]
     Indication: PROSTATITIS
     Route: 065
  5. PROLOPA [Concomitant]
     Indication: PARKINSON^S DISEASE
     Route: 048
     Dates: end: 201309
  6. LASIX [Concomitant]
     Indication: CARDIAC FAILURE
     Route: 048
     Dates: start: 201208, end: 201309
  7. ALDACTONE [Concomitant]
     Indication: CARDIAC FAILURE
     Route: 048
     Dates: start: 201208, end: 201309
  8. MOXON [Concomitant]
     Indication: HYPERTENSION
     Route: 048
     Dates: start: 201110, end: 201303
  9. LIPITOR [Concomitant]
     Indication: HYPERCHOLESTEROLAEMIA
     Route: 048
     Dates: end: 201303
  10. CORUNO [Concomitant]
     Indication: ISCHAEMIC CARDIOMYOPATHY
     Route: 048
     Dates: end: 201309
  11. ASAFLOW [Concomitant]
     Indication: ISCHAEMIC CARDIOMYOPATHY
     Route: 048
     Dates: end: 201305
  12. TERAZOSIN [Concomitant]
     Indication: BENIGN PROSTATIC HYPERPLASIA
     Route: 048
     Dates: end: 201303

REACTIONS (6)
  - Pancytopenia [Fatal]
  - Myelodysplastic syndrome [Fatal]
  - Bone marrow failure [Not Recovered/Not Resolved]
  - Cardiac failure [Unknown]
  - Epistaxis [Unknown]
  - Haematoma [Unknown]
